FAERS Safety Report 11096219 (Version 2)
Quarter: 2015Q3

REPORT INFORMATION
  Report Type: Spontaneous
  Country: US (occurrence: US)
  Receive Date: 20150507
  Receipt Date: 20150730
  Transmission Date: 20151125
  Serious: Yes (Other)
  Sender: FDA-Public Use
  Company Number: US-BAYER-2015-180113

PATIENT
  Sex: Female

DRUGS (2)
  1. MIRENA [Suspect]
     Active Substance: LEVONORGESTREL
     Indication: MENORRHAGIA
  2. MIRENA [Suspect]
     Active Substance: LEVONORGESTREL
     Indication: CONTRACEPTION
     Dosage: 20 MCG/24HR, CONT
     Route: 015
     Dates: start: 201107, end: 20150714

REACTIONS (8)
  - Device physical property issue [None]
  - Polymenorrhoea [None]
  - Abdominal pain lower [Not Recovered/Not Resolved]
  - Drug ineffective [None]
  - Amenorrhoea [None]
  - Device difficult to use [None]
  - Device difficult to use [None]
  - Genital haemorrhage [None]

NARRATIVE: CASE EVENT DATE: 201506
